FAERS Safety Report 20683950 (Version 17)
Quarter: 2025Q1

REPORT INFORMATION
  Report Type: Report from Study
  Country: CA (occurrence: CA)
  Receive Date: 20220407
  Receipt Date: 20250320
  Transmission Date: 20250408
  Serious: Yes (Hospitalization, Other)
  Sender: OTSUKA
  Company Number: CA-OTSUKA-2022_021329

PATIENT
  Age: 20 Year
  Sex: Male

DRUGS (2)
  1. ARIPIPRAZOLE [Suspect]
     Active Substance: ARIPIPRAZOLE
     Indication: Product used for unknown indication
     Route: 030
  2. ARIPIPRAZOLE [Suspect]
     Active Substance: ARIPIPRAZOLE
     Route: 030

REACTIONS (10)
  - Pulmonary congestion [Unknown]
  - Accident [Unknown]
  - Illness [Unknown]
  - COVID-19 [Recovered/Resolved]
  - Malaise [Unknown]
  - Nasopharyngitis [Unknown]
  - Fatigue [Unknown]
  - Product dose omission in error [Unknown]
  - Inappropriate schedule of product administration [Recovered/Resolved]
  - Product availability issue [Recovered/Resolved]

NARRATIVE: CASE EVENT DATE: 20220327
